FAERS Safety Report 5964049-X (Version None)
Quarter: 2008Q4

REPORT INFORMATION
  Report Type: 
  Country: None (occurrence: None)
  Receive Date: 20081124
  Receipt Date: 20081111
  Transmission Date: 20090506
  Serious: Yes (Death, Hospitalization)
  Sender: FDA-Public Use
  Company Number: IE-ELI_LILLY_AND_COMPANY-IE200810003060

PATIENT
  Age: 56 Year
  Sex: Female

DRUGS (3)
  1. CYMBALTA [Suspect]
     Dosage: UNK, UNKNOWN
     Route: 065
     Dates: start: 20060401
  2. TRYPTIZOL [Interacting]
     Dosage: UNK, UNKNOWN
     Route: 065
     Dates: start: 20060401
  3. FLOXAPEN [Concomitant]
     Dosage: UNK, UNKNOWN
     Route: 065

REACTIONS (4)
  - BRONCHOPNEUMONIA [None]
  - DRUG INTERACTION [None]
  - RENAL FAILURE [None]
  - SEROTONIN SYNDROME [None]
